FAERS Safety Report 6337313-2 (Version None)
Quarter: 2009Q3

REPORT INFORMATION
  Report Type: 
  Country: None (occurrence: None)
  Receive Date: 20090828
  Receipt Date: 20090828
  Transmission Date: 20100115
  Serious: Yes (Hospitalization)
  Sender: FDA-Public Use
  Company Number: None

PATIENT
  Sex: Male
  Weight: 77.7 kg

DRUGS (1)
  1. TEMOZOLOMIDE [Suspect]
     Indication: ACUTE MYELOID LEUKAEMIA
     Dosage: QG PO
     Route: 048

REACTIONS (5)
  - ABDOMINAL TENDERNESS [None]
  - BALANCE DISORDER [None]
  - CHILLS [None]
  - CREPITATIONS [None]
  - FEBRILE NEUTROPENIA [None]
